FAERS Safety Report 9921962 (Version 1)
Quarter: 2014Q1

REPORT INFORMATION
  Report Type: Spontaneous
  Country: US (occurrence: None)
  Receive Date: 20140221
  Receipt Date: 20140221
  Transmission Date: 20141002
  Serious: Yes (Disabling)
  Sender: FDA-Public Use
  Company Number: None

PATIENT
  Age: 48 Year
  Sex: Female
  Weight: 61.24 kg

DRUGS (2)
  1. COZAAR [Suspect]
     Indication: BLOOD PRESSURE INADEQUATELY CONTROLLED
     Dosage: DATE OF USE GIVEN 09/30/2015 IS GREATER THAN CURRENT DATE?1 PILL ONCE DAILY
     Route: 048
  2. LEVOTIROXINE [Suspect]
     Indication: THYROID DISORDER
     Dosage: DATE OF USE GIVEN 08/30/2015 IS GREATER THAN CURRENT DATE?1 PILL TWICE DAILY
     Route: 048

REACTIONS (11)
  - Malaise [None]
  - Pain [None]
  - Pain in extremity [None]
  - Arthralgia [None]
  - Arthralgia [None]
  - Musculoskeletal pain [None]
  - Back pain [None]
  - Impaired work ability [None]
  - Gait disturbance [None]
  - Activities of daily living impaired [None]
  - Pain [None]
